FAERS Safety Report 6081105-9 (Version None)
Quarter: 2009Q1

REPORT INFORMATION
  Report Type: 
  Country: None (occurrence: None)
  Receive Date: 20090114
  Receipt Date: 20080207
  Transmission Date: 20090719
  Serious: Yes (Life-Threatening)
  Sender: FDA-Public Use
  Company Number: 268538

PATIENT
  Age: 58 Year
  Sex: Female

DRUGS (2)
  1. NOVOLIN R [Suspect]
     Indication: TYPE 1 DIABETES MELLITUS
     Dosage: 17 IU, QD, SUBCUTANEOUS
     Route: 058
     Dates: start: 20070401
  2. NOVOLIN N [Suspect]
     Indication: TYPE 1 DIABETES MELLITUS
     Dosage: 21 IU, QD, SUBCUTANEOUS
     Route: 058
     Dates: start: 20070401

REACTIONS (1)
  - HYPOGLYCAEMIC UNCONSCIOUSNESS [None]
